FAERS Safety Report 9597667 (Version 1)
Quarter: 2013Q4

REPORT INFORMATION
  Report Type: Spontaneous
  Country: US (occurrence: US)
  Receive Date: 20131004
  Receipt Date: 20131004
  Transmission Date: 20140711
  Serious: No
  Sender: FDA-Public Use
  Company Number: US-AMGEN-USASP2013020363

PATIENT
  Age: 62 Year
  Sex: Female
  Weight: 96.15 kg

DRUGS (12)
  1. ENBREL [Suspect]
     Indication: RHEUMATOID ARTHRITIS
     Dosage: 50 MG, EVERY WEEK
     Route: 058
  2. ZOCOR [Concomitant]
     Dosage: 5 MG, UNK
  3. LOPRESSOR [Concomitant]
     Dosage: 50 MG, UNK
  4. PAXIL                              /00500401/ [Concomitant]
     Dosage: 10 MG, UNK
  5. TEKTURNA HCT [Concomitant]
     Dosage: 150-12.5, UNK, UNK
  6. TRAZODONE [Concomitant]
     Dosage: 100 MG, UNK
  7. DIAZEPAM [Concomitant]
     Dosage: 2 MG, UNK
  8. ZOFRAN                             /00955301/ [Concomitant]
     Dosage: 4 MG, UNK
  9. PRILOSEC                           /00661201/ [Concomitant]
     Dosage: 10 MG, UNK
  10. PYRIDOXINE [Concomitant]
     Dosage: 100 MG, UNK
  11. METHYLPRED [Concomitant]
     Dosage: 8 MG, UNK
  12. ESTROVEN [Concomitant]
     Dosage: UNK

REACTIONS (4)
  - Injection site erythema [Unknown]
  - Erythema [Unknown]
  - Pruritus [Unknown]
  - Rash [Unknown]
